FAERS Safety Report 23035917 (Version 1)
Quarter: 2023Q4

REPORT INFORMATION
  Report Type: Report from Study
  Country: US (occurrence: US)
  Receive Date: 20231006
  Receipt Date: 20231006
  Transmission Date: 20240110
  Serious: No
  Sender: FDA-Public Use
  Company Number: US-002147023-NVSC2023US214486

PATIENT
  Sex: Female

DRUGS (1)
  1. ENTRESTO [Suspect]
     Active Substance: SACUBITRIL\VALSARTAN
     Indication: Product used for unknown indication
     Dosage: 24/26MG, BID
     Route: 065
     Dates: start: 20230901

REACTIONS (4)
  - Nasopharyngitis [Unknown]
  - Cough [Unknown]
  - Abdominal pain upper [Unknown]
  - Hypersomnia [Unknown]
